FAERS Safety Report 18814327 (Version 1)
Quarter: 2021Q1

REPORT INFORMATION
  Report Type: Spontaneous
  Country: US (occurrence: US)
  Receive Date: 20210129
  Receipt Date: 20210129
  Transmission Date: 20210419
  Serious: Yes (Other)
  Sender: FDA-Public Use
  Company Number: None

PATIENT
  Age: 28 Year
  Sex: Female

DRUGS (1)
  1. GENERIC LAMICTAL [Suspect]
     Active Substance: LAMOTRIGINE
     Indication: BIPOLAR II DISORDER
     Dosage: ?          OTHER FREQUENCY:3.5 QD;?
     Route: 048
     Dates: start: 20200702, end: 20201112

REACTIONS (4)
  - Product substitution issue [None]
  - Pruritus [None]
  - Rash [None]
  - Urticaria [None]
